FAERS Safety Report 26203055 (Version 1)
Quarter: 2025Q4

REPORT INFORMATION
  Report Type: Report from Study
  Country: CA (occurrence: CA)
  Receive Date: 20251226
  Receipt Date: 20251226
  Transmission Date: 20260118
  Serious: Yes (Hospitalization)
  Sender: ABBVIE
  Company Number: CA-ABBVIE-6605048

PATIENT
  Age: 81 Year
  Sex: Male

DRUGS (1)
  1. SKYRIZI [Suspect]
     Active Substance: RISANKIZUMAB-RZAA
     Indication: Crohn^s disease
     Dosage: LDD: 04 NOV 2025.
     Route: 058

REACTIONS (5)
  - Cholecystectomy [Unknown]
  - Dyspepsia [Unknown]
  - Weight decreased [Unknown]
  - Feeding disorder [Unknown]
  - Cataract [Unknown]

NARRATIVE: CASE EVENT DATE: 20250709
